FAERS Safety Report 4496354-0 (Version None)
Quarter: 2004Q4

REPORT INFORMATION
  Report Type: 
  Country: None (occurrence: None)
  Receive Date: 20041104
  Receipt Date: 20041022
  Transmission Date: 20050328
  Serious: Yes (Hospitalization)
  Sender: FDA-Public Use
  Company Number: US014163

PATIENT
  Age: 16 Year
  Sex: Female

DRUGS (3)
  1. GABITRIL [Suspect]
     Indication: SLEEP DISORDER
     Dosage: 2 MG BID ORAL
     Route: 048
     Dates: start: 20040706, end: 20040806
  2. LEXAPRO [Concomitant]
  3. ATARAX [Concomitant]

REACTIONS (1)
  - CONVULSION [None]
